FAERS Safety Report 23755108 (Version 4)
Quarter: 2025Q2

REPORT INFORMATION
  Report Type: Spontaneous
  Country: JP (occurrence: JP)
  Receive Date: 20240418
  Receipt Date: 20250618
  Transmission Date: 20250716
  Serious: Yes (Hospitalization, Other)
  Sender: ARGENX BVBA
  Company Number: JP-ARGENX-2024-ARGX-JP000526AA

PATIENT

DRUGS (5)
  1. EFGARTIGIMOD ALFA [Suspect]
     Active Substance: EFGARTIGIMOD ALFA
     Indication: Myasthenia gravis
     Route: 042
     Dates: start: 20230313, end: 2023
  2. EFGARTIGIMOD ALFA [Suspect]
     Active Substance: EFGARTIGIMOD ALFA
     Route: 042
     Dates: start: 2023, end: 20230606
  3. CYCLOSPORINE [Concomitant]
     Active Substance: CYCLOSPORINE
     Indication: Product used for unknown indication
     Route: 048
  4. Globulin [Concomitant]
     Indication: Myasthenia gravis
     Route: 042
  5. PREDNISOLONE [Concomitant]
     Active Substance: PREDNISOLONE
     Indication: Myasthenia gravis
     Route: 048

REACTIONS (4)
  - Dyspnoea [Recovered/Resolved]
  - Myasthenia gravis crisis [Recovered/Resolved]
  - Dropped head syndrome [Recovered/Resolved]
  - Myasthenia gravis [Unknown]

NARRATIVE: CASE EVENT DATE: 20230616
